FAERS Safety Report 23926859 (Version 1)
Quarter: 2024Q2

REPORT INFORMATION
  Report Type: Spontaneous
  Country: US (occurrence: US)
  Receive Date: 20240531
  Receipt Date: 20240531
  Transmission Date: 20240716
  Serious: No
  Sender: FDA-Public Use
  Company Number: US-INCYTE CORPORATION-2024IN005152

PATIENT

DRUGS (2)
  1. OPZELURA [Suspect]
     Active Substance: RUXOLITINIB PHOSPHATE
     Indication: Dermatitis contact
     Dosage: UNK, QD
     Route: 061
  2. PROPRANOLOL [Concomitant]
     Active Substance: PROPRANOLOL HYDROCHLORIDE
     Indication: Heart rate increased
     Route: 065

REACTIONS (4)
  - Fatigue [Unknown]
  - Dizziness [Unknown]
  - Feeling abnormal [Unknown]
  - Headache [Unknown]
